FAERS Safety Report 15260281 (Version 4)
Quarter: 2020Q4

REPORT INFORMATION
  Report Type: Report from Study
  Country: US (occurrence: US)
  Receive Date: 20180809
  Receipt Date: 20201210
  Transmission Date: 20210113
  Serious: Yes (Hospitalization, Other)
  Sender: FDA-Public Use
  Company Number: US-SAKK-2018SA211640AA

PATIENT

DRUGS (5)
  1. INSULIN GLARGINE [Suspect]
     Active Substance: INSULIN GLARGINE
     Dosage: 22 IU
  2. INSULIN GLARGINE [Suspect]
     Active Substance: INSULIN GLARGINE
     Dosage: 30 IU
  3. INSULIN GLARGINE [Suspect]
     Active Substance: INSULIN GLARGINE
     Dosage: 30 IU
  4. INSULIN GLARGINE [Suspect]
     Active Substance: INSULIN GLARGINE
     Dosage: 18 IU
  5. INSULIN GLARGINE [Suspect]
     Active Substance: INSULIN GLARGINE
     Dosage: 20 IU

REACTIONS (16)
  - Visual impairment [Unknown]
  - Hyperhidrosis [Unknown]
  - Product label confusion [Unknown]
  - Intentional product misuse [Unknown]
  - Unevaluable event [Not Recovered/Not Resolved]
  - Hypoglycaemia [Not Recovered/Not Resolved]
  - Cataract [Unknown]
  - Diabetes mellitus inadequate control [Unknown]
  - Asthenia [Unknown]
  - Hyperglycaemia [Not Recovered/Not Resolved]
  - Blood glucose fluctuation [Unknown]
  - Incorrect dose administered [Unknown]
  - Hip surgery [Unknown]
  - Device use issue [Unknown]
  - Cardiac disorder [Recovered/Resolved]
  - Hypoglycaemia [Recovered/Resolved]

NARRATIVE: CASE EVENT DATE: 20190307
